FAERS Safety Report 25834556 (Version 1)
Quarter: 2025Q3

REPORT INFORMATION
  Report Type: Spontaneous
  Country: JP (occurrence: JP)
  Receive Date: 20250923
  Receipt Date: 20250923
  Transmission Date: 20251021
  Serious: Yes (Hospitalization, Other)
  Sender: ORGANON
  Company Number: JP-MEIJISEIKA-202505419_P_1

PATIENT
  Age: 17 Year
  Sex: Female

DRUGS (2)
  1. REFLEX [Suspect]
     Active Substance: MIRTAZAPINE
     Indication: Depression
     Route: 048
  2. VENLAFAXINE HYDROCHLORIDE [Concomitant]
     Active Substance: VENLAFAXINE HYDROCHLORIDE
     Indication: Depression
     Route: 048

REACTIONS (2)
  - Altered state of consciousness [Unknown]
  - Long QT syndrome [Recovering/Resolving]
